FAERS Safety Report 8915866 (Version 1)
Quarter: 2012Q4

REPORT INFORMATION
  Report Type: 
  Country: US (occurrence: US)
  Receive Date: 20121119
  Receipt Date: 20121119
  Transmission Date: 20130627
  Serious: No
  Sender: FDA-Public Use
  Company Number: US-PFIZER INC-2012287059

PATIENT
  Age: 62 Year
  Sex: Male
  Weight: 111.1 kg

DRUGS (6)
  1. ADVIL [Suspect]
     Indication: BACK PAIN
     Dosage: two capsule once a day
     Route: 048
     Dates: start: 20121107
  2. ADVIL [Suspect]
     Indication: BACK PAIN
     Dosage: 2 capsules of 200 mg, daily
     Route: 048
     Dates: start: 201211
  3. RAMIPRIL [Concomitant]
     Dosage: UNK
  4. GABAPENTIN [Concomitant]
     Dosage: UNK
  5. GLIMEPIRIDE [Concomitant]
     Dosage: UNK
  6. METFORMIN [Concomitant]
     Dosage: UNK

REACTIONS (1)
  - Faeces discoloured [Unknown]
